FAERS Safety Report 7726316-9 (Version None)
Quarter: 2011Q3

REPORT INFORMATION
  Report Type: 
  Country: None (occurrence: None)
  Receive Date: 20110902
  Receipt Date: 20110824
  Transmission Date: 20111222
  Serious: Yes (Hospitalization)
  Sender: FDA-Public Use
  Company Number: US-BAYER-2011-042607

PATIENT
  Age: 36 Year
  Sex: Female
  Weight: 95 kg

DRUGS (12)
  1. XOPENEX [Concomitant]
     Indication: ASTHMA
     Dosage: UNK
     Dates: start: 20081001
  2. LEVAQUIN [Concomitant]
     Dosage: UNK UNK, QD
     Dates: start: 20081001
  3. KEFLEX [Concomitant]
     Dosage: UNK
     Dates: start: 20090225
  4. OGESTREL 0.5/50-21 [Concomitant]
     Indication: CONTRACEPTION
  5. YASMIN [Suspect]
     Indication: CONTRACEPTION
     Dosage: UNK
     Route: 048
     Dates: start: 20030201, end: 20090201
  6. HYDROCODONE BITARTRATE AND ACETAMINOPHEN [Concomitant]
     Indication: PAIN
     Dosage: UNK
     Route: 048
     Dates: start: 20090304
  7. CELESTONE TAB [Concomitant]
     Indication: ASTHMA
     Dosage: 1.5 ML, UNK
     Route: 030
     Dates: start: 20081001
  8. ALLEGRA D 24 HOUR [Concomitant]
     Indication: ASTHMA
     Dosage: UNK UNK, BID
     Dates: start: 20081001
  9. DROSPIRENONE AND ETHINYL ESTRADIOL [Suspect]
     Indication: CONTRACEPTION
     Dosage: UNK
     Route: 048
     Dates: start: 20030201, end: 20090201
  10. YASMIN [Suspect]
     Dosage: UNK
     Dates: end: 20080917
  11. BELLADONNA AND PHENOBARBITONE [Concomitant]
     Indication: ABDOMINAL PAIN UPPER
     Dosage: UNK
     Dates: start: 20090221
  12. COUGH AND COLD PREPARATIONS [Concomitant]
     Indication: ASTHMA
     Dosage: UNK
     Dates: start: 20081001

REACTIONS (5)
  - BILE DUCT STONE [None]
  - CHOLECYSTITIS CHRONIC [None]
  - PAIN [None]
  - CHOLELITHIASIS [None]
  - GALLBLADDER DISORDER [None]
